FAERS Safety Report 22540529 (Version 1)
Quarter: 2023Q2

REPORT INFORMATION
  Report Type: Spontaneous
  Country: US (occurrence: None)
  Receive Date: 20230608
  Receipt Date: 20230608
  Transmission Date: 20230721
  Serious: Yes (Hospitalization)
  Sender: FDA-Public Use
  Company Number: None

PATIENT
  Sex: Male

DRUGS (16)
  1. ABIRATERONE [Suspect]
     Active Substance: ABIRATERONE
     Indication: Prostate cancer
     Dosage: FREQUENCY : DAILY;?
     Route: 048
  2. ACETAMINOPHEN [Concomitant]
     Active Substance: ACETAMINOPHEN
  3. ALLOPURINOL [Concomitant]
     Active Substance: ALLOPURINOL
  4. AZELATINE [Concomitant]
  5. CETIRIZINE [Concomitant]
     Active Substance: CETIRIZINE HYDROCHLORIDE
  6. VITAMIN D [Concomitant]
  7. FOLIC ACID [Concomitant]
  8. FUROSEMIDE [Concomitant]
  9. INJECTAFER IV SOLUTION [Concomitant]
  10. LOSARTAN [Concomitant]
  11. NIFEDIPINE [Concomitant]
     Active Substance: NIFEDIPINE
  12. POLYETHYLENE GLYCOL [Concomitant]
  13. PREDNISONE [Concomitant]
  14. RENAL-VITE [Concomitant]
  15. SIMVASTATIN [Concomitant]
  16. TAMUSLOSIN [Concomitant]

REACTIONS (1)
  - Bladder cancer [None]
